FAERS Safety Report 19788031 (Version 1)
Quarter: 2021Q3

REPORT INFORMATION
  Report Type: Spontaneous
  Country: US (occurrence: US)
  Receive Date: 20210903
  Receipt Date: 20210903
  Transmission Date: 20211014
  Serious: No
  Sender: FDA-Public Use
  Company Number: US-BRAINTREE LABORATORIES, INC.-2021BTE00438

PATIENT
  Age: 70 Year
  Sex: Female

DRUGS (14)
  1. LOSARTAN AND HYDROCHLOROTHIAZIDE [Concomitant]
     Active Substance: HYDROCHLOROTHIAZIDE\LOSARTAN POTASSIUM
  2. VITAMIN B [Concomitant]
     Active Substance: VITAMIN B
  3. LOW DOSE ASPIRIN [Concomitant]
     Active Substance: ASPIRIN
  4. PRASUGREL. [Concomitant]
     Active Substance: PRASUGREL
  5. VITAMIN C [Concomitant]
     Active Substance: ASCORBIC ACID
  6. SUTAB [Suspect]
     Active Substance: MAGNESIUM SULFATE\POTASSIUM CHLORIDE\SODIUM SULFATE
     Indication: COLONOSCOPY
     Dosage: 1X 12 TABLETS, 1X
     Route: 048
     Dates: start: 20210531
  7. PANTOPRAZOLE [Concomitant]
     Active Substance: PANTOPRAZOLE
  8. VITAMIN D3 [Concomitant]
     Active Substance: CHOLECALCIFEROL
  9. MONTELUKAST [Concomitant]
     Active Substance: MONTELUKAST SODIUM
  10. IRON SUPPLEMENT [Concomitant]
     Active Substance: IRON
  11. METOPROLOL. [Concomitant]
     Active Substance: METOPROLOL
  12. ISOSORBIDE. [Concomitant]
     Active Substance: ISOSORBIDE
  13. DILTIAZEM. [Concomitant]
     Active Substance: DILTIAZEM
  14. ATORVASTATIN [Concomitant]
     Active Substance: ATORVASTATIN

REACTIONS (2)
  - Vomiting [Unknown]
  - Nausea [Unknown]

NARRATIVE: CASE EVENT DATE: 20210531
